FAERS Safety Report 13133151 (Version 1)
Quarter: 2017Q1

REPORT INFORMATION
  Report Type: Spontaneous
  Country: US (occurrence: US)
  Receive Date: 20170118
  Receipt Date: 20170118
  Transmission Date: 20170428
  Serious: Yes (Other)
  Sender: FDA-Public Use
  Company Number: None

PATIENT
  Age: 17 Year
  Sex: Male
  Weight: 61.24 kg

DRUGS (1)
  1. ABILIFYGENERIC /ARIPIPRAZOLE [Suspect]
     Active Substance: ARIPIPRAZOLE
     Indication: AUTISM
     Dosage: 20 MG TAB 1/4 QAM + 3/4 HS PO
     Route: 048
     Dates: start: 20170112, end: 20170114

REACTIONS (9)
  - Tunnel vision [None]
  - Psychomotor hyperactivity [None]
  - Visual impairment [None]
  - Decreased appetite [None]
  - Vision blurred [None]
  - Irritability [None]
  - Apathy [None]
  - Anger [None]
  - Disruptive mood dysregulation disorder [None]

NARRATIVE: CASE EVENT DATE: 20170112
